FAERS Safety Report 20962545 (Version 1)
Quarter: 2022Q2

REPORT INFORMATION
  Report Type: Spontaneous
  Country: US (occurrence: US)
  Receive Date: 20220615
  Receipt Date: 20220615
  Transmission Date: 20220720
  Serious: No
  Sender: FDA-Public Use
  Company Number: US-Blueprint Medicines Corporation-132

PATIENT
  Age: 47 Year
  Sex: Male

DRUGS (2)
  1. AYVAKIT [Suspect]
     Active Substance: AVAPRITINIB
     Indication: Haematopoietic neoplasm
     Route: 048
     Dates: start: 20210724
  2. AYVAKIT [Suspect]
     Active Substance: AVAPRITINIB

REACTIONS (11)
  - Eye swelling [Unknown]
  - Anaemia [Unknown]
  - Blood pressure increased [Unknown]
  - Diarrhoea [Unknown]
  - Asthenia [Unknown]
  - Weight fluctuation [Unknown]
  - Swelling [Unknown]
  - Apathy [Unknown]
  - Food intolerance [Unknown]
  - Mobility decreased [Unknown]
  - Abdominal discomfort [Unknown]
